FAERS Safety Report 15665861 (Version 1)
Quarter: 2018Q4

REPORT INFORMATION
  Report Type: Report from Study
  Country: US (occurrence: US)
  Receive Date: 20181128
  Receipt Date: 20181128
  Transmission Date: 20190205
  Serious: Yes (Other)
  Sender: FDA-Public Use
  Company Number: US-JAZZ-2018-US-017002

PATIENT
  Age: 2 Year
  Sex: Female
  Weight: 14.4 kg

DRUGS (1)
  1. CPX-351 [Suspect]
     Active Substance: CYTARABINE\DAUNORUBICIN
     Indication: ACUTE MYELOID LEUKAEMIA
     Dosage: 243 U, UNK
     Route: 042
     Dates: start: 20180222, end: 20180226

REACTIONS (1)
  - Fasciitis [Recovered/Resolved]

NARRATIVE: CASE EVENT DATE: 20180316
